FAERS Safety Report 5870994-6 (Version None)
Quarter: 2008Q3

REPORT INFORMATION
  Report Type: 
  Country: None (occurrence: None)
  Receive Date: 20080904
  Receipt Date: 20080901
  Transmission Date: 20090109
  Serious: Yes (Life-Threatening)
  Sender: FDA-Public Use
  Company Number: GB-BOEHRINGER INGELHEIM GMBH, GERMANY-2008-UK-01506UK

PATIENT
  Sex: Female

DRUGS (6)
  1. ATROVENT [Suspect]
     Indication: ASTHMA
  2. AMINOPHYLLINE [Suspect]
     Indication: ASTHMA
     Route: 042
  3. AMOXICILLIN [Suspect]
     Indication: ASTHMA
     Route: 042
  4. CLARITHROMYCIN [Suspect]
     Indication: ASTHMA
     Route: 042
  5. HYDROCORTISONE [Suspect]
     Indication: ASTHMA
     Route: 042
  6. MAGNESIUM SULFATE [Suspect]
     Indication: ASTHMA

REACTIONS (2)
  - ASTHMA [None]
  - RESPIRATORY FAILURE [None]
